FAERS Safety Report 8164295-3 (Version None)
Quarter: 2012Q1

REPORT INFORMATION
  Report Type: 
  Country: None (occurrence: None)
  Receive Date: 20120224
  Receipt Date: 20110310
  Transmission Date: 20120608
  Serious: No
  Sender: FDA-Public Use
  Company Number: US-MYLANLABS-2010S1021859

PATIENT
  Sex: Female

DRUGS (3)
  1. COZAAR [Suspect]
     Route: 048
  2. NASAL PREPARATIONS [Concomitant]
  3. ATENOLOL [Suspect]
     Indication: BLOOD PRESSURE INCREASED
     Route: 048

REACTIONS (2)
  - SINUS HEADACHE [None]
  - HEADACHE [None]
